FAERS Safety Report 4434740-5 (Version None)
Quarter: 2004Q3

REPORT INFORMATION
  Report Type: 
  Country: None (occurrence: None)
  Receive Date: 20040827
  Receipt Date: 20040623
  Transmission Date: 20050211
  Serious: No
  Sender: FDA-Public Use
  Company Number: US-BRISTOL-MYERS SQUIBB COMPANY-12624441

PATIENT
  Sex: Male

DRUGS (1)
  1. DEFINITY [Suspect]
     Dosage: 1.5 ML DEFINITY AND 30 ML SALINE GIVEN AT 100 ML/HR
     Route: 042
     Dates: start: 20040610, end: 20040610

REACTIONS (1)
  - BACK PAIN [None]
